FAERS Safety Report 6660125-7 (Version None)
Quarter: 2010Q1

REPORT INFORMATION
  Report Type: 
  Country: None (occurrence: None)
  Receive Date: 20100331
  Receipt Date: 20100226
  Transmission Date: 20100710
  Serious: No
  Sender: FDA-Public Use
  Company Number: 2009BI007398

PATIENT
  Age: 59 Year
  Sex: Female

DRUGS (4)
  1. TYSABRI [Suspect]
     Indication: MULTIPLE SCLEROSIS
     Route: 042
     Dates: start: 20070118
  2. PEPCID [Concomitant]
     Indication: PROPHYLAXIS
  3. BENADRYL [Concomitant]
     Indication: PROPHYLAXIS
  4. SALINE [Concomitant]
     Indication: PROPHYLAXIS
     Route: 042

REACTIONS (3)
  - BLOOD PRESSURE DECREASED [None]
  - HEADACHE [None]
  - HYPERSENSITIVITY [None]
